FAERS Safety Report 16874326 (Version 1)
Quarter: 2019Q4

REPORT INFORMATION
  Report Type: Report from Study
  Country: ES (occurrence: ES)
  Receive Date: 20191001
  Receipt Date: 20191001
  Transmission Date: 20200122
  Serious: Yes (Death)
  Sender: FDA-Public Use
  Company Number: ES-BAUSCH-BL-2019-054589

PATIENT
  Age: 79 Year
  Sex: Female

DRUGS (6)
  1. SINTROM [Interacting]
     Active Substance: ACENOCOUMAROL
     Indication: ATRIAL FIBRILLATION
     Dosage: 60 TABLETS
     Route: 048
     Dates: start: 20190421, end: 20190421
  2. AMLODIPINE [Concomitant]
     Active Substance: AMLODIPINE BESYLATE
     Indication: HYPERTENSION
     Route: 048
     Dates: end: 20190421
  3. PREDNISOLONA [Suspect]
     Active Substance: PREDNISOLONE
     Indication: BRONCHOSPASM
     Route: 048
     Dates: start: 20190413, end: 20190421
  4. CLEXANE [Interacting]
     Active Substance: ENOXAPARIN SODIUM
     Indication: ATRIAL FIBRILLATION
     Dosage: 120 MG/0.8ML; 10 PRE-FILLED SYRINGES
     Route: 058
     Dates: start: 20190413, end: 20190421
  5. ENALAPRIL MALEATE. [Concomitant]
     Active Substance: ENALAPRIL MALEATE
     Indication: HYPERTENSION
     Route: 048
     Dates: end: 20190421
  6. TROMALYT [Interacting]
     Active Substance: ASPIRIN
     Indication: THROMBOSIS PROPHYLAXIS
     Dosage: 28 CAPSULES
     Route: 048
     Dates: start: 2002, end: 20190421

REACTIONS (1)
  - Retroperitoneal haematoma [Fatal]

NARRATIVE: CASE EVENT DATE: 20190422
